FAERS Safety Report 22038341 (Version 1)
Quarter: 2023Q1

REPORT INFORMATION
  Report Type: Spontaneous
  Country: IR (occurrence: IR)
  Receive Date: 20230227
  Receipt Date: 20230227
  Transmission Date: 20230418
  Serious: Yes (Death, Hospitalization, Other)
  Sender: FDA-Public Use
  Company Number: IR-STERISCIENCE B.V.-2023-ST-000807

PATIENT
  Age: 8 Year
  Sex: Female

DRUGS (3)
  1. VANCOMYCIN [Suspect]
     Active Substance: VANCOMYCIN
     Indication: COVID-19 pneumonia
     Dosage: 240 MILLIGRAM UP TO THREE DOSES
     Route: 042
     Dates: start: 2020
  2. TAMIFLU [Suspect]
     Active Substance: OSELTAMIVIR PHOSPHATE
     Indication: COVID-19 pneumonia
     Dosage: THREE TABLETS OF 75 MILLIGRAM
     Dates: start: 2020
  3. AZITHROMYCIN [Suspect]
     Active Substance: AZITHROMYCIN
     Indication: COVID-19 pneumonia
     Dosage: 60 MILLIGRAM
     Dates: start: 2020

REACTIONS (1)
  - Drug ineffective for unapproved indication [Fatal]

NARRATIVE: CASE EVENT DATE: 20200101
